FAERS Safety Report 4538270-1 (Version None)
Quarter: 2004Q4

REPORT INFORMATION
  Report Type: 
  Country: None (occurrence: None)
  Receive Date: 20041221
  Receipt Date: 20041206
  Transmission Date: 20050328
  Serious: Yes (Death, Other)
  Sender: FDA-Public Use
  Company Number: 2004-BP-13255NB

PATIENT
  Age: 75 Year
  Sex: Female

DRUGS (8)
  1. SIFROL         (PRAMIPEXOLE DIHYDROCHLORIDE) [Suspect]
     Indication: PARKINSON'S DISEASE
     Dosage: PO
     Route: 048
     Dates: start: 20041006, end: 20041110
  2. MADOPAR (MADOPAR) (TA) [Concomitant]
  3. PERMAX (PERGOLIDE MESILATE) (TA) [Concomitant]
  4. EUGLUCON (GLIBENCLAMIDE) (TA) [Concomitant]
  5. BASEN (VOGLIBOSE) (TA) [Concomitant]
  6. BUFFERIN (TA) [Concomitant]
  7. MEVALOTIN (PRAVASTATIN SODIUM) (TA) [Concomitant]
  8. ASPIRIN [Concomitant]

REACTIONS (1)
  - CARDIO-RESPIRATORY ARREST [None]
